FAERS Safety Report 6901832-8 (Version None)
Quarter: 2010Q3

REPORT INFORMATION
  Report Type: 
  Country: None (occurrence: None)
  Receive Date: 20100803
  Receipt Date: 20080318
  Transmission Date: 20110219
  Serious: No
  Sender: FDA-Public Use
  Company Number: US-PFIZER INC-2008025641

PATIENT
  Sex: Female
  Weight: 70 kg

DRUGS (3)
  1. LYRICA [Suspect]
     Indication: NEUROPATHY PERIPHERAL
     Dates: start: 20040301
  2. METOPROLOL [Concomitant]
     Route: 048
     Dates: start: 20060101
  3. LISINOPRIL [Concomitant]
     Route: 048
     Dates: start: 20060101

REACTIONS (4)
  - ARTHRALGIA [None]
  - BURNING SENSATION [None]
  - DRUG INEFFECTIVE [None]
  - OEDEMA PERIPHERAL [None]
